FAERS Safety Report 16482841 (Version 1)
Quarter: 2019Q2

REPORT INFORMATION
  Report Type: Spontaneous
  Country: TH (occurrence: TH)
  Receive Date: 20190627
  Receipt Date: 20190627
  Transmission Date: 20190711
  Serious: Yes (Other)
  Sender: FDA-Public Use
  Company Number: TH-REGENERON PHARMACEUTICALS, INC.-2019-39005

PATIENT

DRUGS (1)
  1. EYLEA [Suspect]
     Active Substance: AFLIBERCEPT
     Indication: POLYPOIDAL CHOROIDAL VASCULOPATHY
     Dosage: TOTAL OF 8 INJECTONS
     Route: 031
     Dates: start: 20181003, end: 20190513

REACTIONS (2)
  - Drug ineffective [Unknown]
  - Polypoidal choroidal vasculopathy [Not Recovered/Not Resolved]

NARRATIVE: CASE EVENT DATE: 201810
